FAERS Safety Report 18342643 (Version 1)
Quarter: 2020Q4

REPORT INFORMATION
  Report Type: Spontaneous
  Country: TW (occurrence: TW)
  Receive Date: 20201005
  Receipt Date: 20201005
  Transmission Date: 20210113
  Serious: Yes (Life-Threatening, Hospitalization, Other)
  Sender: FDA-Public Use
  Company Number: TW-LUPIN PHARMACEUTICALS INC.-2020-06778

PATIENT
  Age: 81 Year
  Sex: Female

DRUGS (2)
  1. RIVAROXABAN [Suspect]
     Active Substance: RIVAROXABAN
     Indication: DEEP VEIN THROMBOSIS
     Dosage: 15 MILLIGRAM
     Route: 065
  2. CELECOXIB. [Suspect]
     Active Substance: CELECOXIB
     Indication: ARTHRITIS
     Dosage: 200 MILLIGRAM, QD
     Route: 065

REACTIONS (8)
  - Haemothorax [Unknown]
  - Sinus tachycardia [Unknown]
  - Syncope [Unknown]
  - Cardiomegaly [Unknown]
  - Atelectasis [Unknown]
  - Pericardial haemorrhage [Unknown]
  - Electrocardiogram ST-T change [Unknown]
  - Tracheal deviation [Unknown]
